FAERS Safety Report 5585591-X (Version None)
Quarter: 2008Q1

REPORT INFORMATION
  Report Type: 
  Country: None (occurrence: None)
  Receive Date: 20080104
  Receipt Date: 20071228
  Transmission Date: 20080703
  Serious: Yes (Hospitalization, Other)
  Sender: FDA-Public Use
  Company Number: 2007SP024788

PATIENT
  Age: 56 Year
  Sex: Female
  Weight: 69 kg

DRUGS (9)
  1. PEG-INTRON [Suspect]
     Indication: HEPATITIS C
     Dosage: 80 MCG;QW;SC; 60 MCG;QW;SC
     Route: 058
     Dates: start: 20070320, end: 20071106
  2. PEG-INTRON [Suspect]
     Indication: HEPATITIS C
     Dosage: 80 MCG;QW;SC; 60 MCG;QW;SC
     Route: 058
     Dates: start: 20071113, end: 20071120
  3. REBETOL [Suspect]
     Indication: HEPATITIS C
     Dosage: 800 MG;QD;PO; 600 MG;QD;PO; 400 MG;QD;PO
     Route: 048
     Dates: start: 20070320, end: 20070402
  4. REBETOL [Suspect]
     Indication: HEPATITIS C
     Dosage: 800 MG;QD;PO; 600 MG;QD;PO; 400 MG;QD;PO
     Route: 048
     Dates: start: 20070403, end: 20070618
  5. REBETOL [Suspect]
     Indication: HEPATITIS C
     Dosage: 800 MG;QD;PO; 600 MG;QD;PO; 400 MG;QD;PO
     Route: 048
     Dates: start: 20070619, end: 20071107
  6. LOXONIN [Concomitant]
  7. NORVASC [Concomitant]
  8. LUDIOMIL [Concomitant]
  9. BENZMARON [Concomitant]

REACTIONS (8)
  - ALANINE AMINOTRANSFERASE INCREASED [None]
  - ANOREXIA [None]
  - ASPARTATE AMINOTRANSFERASE INCREASED [None]
  - DEHYDRATION [None]
  - HEPATIC ATROPHY [None]
  - JAUNDICE [None]
  - LIVER DISORDER [None]
  - MALAISE [None]
